FAERS Safety Report 14756092 (Version 1)
Quarter: 2018Q2

REPORT INFORMATION
  Report Type: Spontaneous
  Country: DE (occurrence: DE)
  Receive Date: 20180413
  Receipt Date: 20180413
  Transmission Date: 20180711
  Serious: Yes (Other)
  Sender: FDA-Public Use
  Company Number: DE-TEVA-2018-DE-866498

PATIENT
  Age: 43 Year
  Sex: Male
  Weight: 85 kg

DRUGS (1)
  1. COPAXONE [Suspect]
     Active Substance: GLATIRAMER ACETATE
     Indication: MULTIPLE SCLEROSIS
     Dates: start: 20160523

REACTIONS (4)
  - Loss of consciousness [Recovered/Resolved]
  - Autonomic nervous system imbalance [Recovered/Resolved]
  - Syncope [Unknown]
  - Flushing [Recovered/Resolved]

NARRATIVE: CASE EVENT DATE: 20180115
